FAERS Safety Report 9543478 (Version 3)
Quarter: 2013Q4

REPORT INFORMATION
  Report Type: Report from Study
  Country: CA (occurrence: CA)
  Receive Date: 20130923
  Receipt Date: 20131126
  Transmission Date: 20140711
  Serious: Yes (Hospitalization)
  Sender: FDA-Public Use
  Company Number: CA-BAYER-2013-114532

PATIENT
  Age: 66 Year
  Sex: Male
  Weight: 74 kg

DRUGS (12)
  1. ALPHARADIN [Suspect]
     Indication: HORMONE-REFRACTORY PROSTATE CANCER
     Dosage: 3.8 MBQ, ONCE
     Route: 042
     Dates: start: 20130916, end: 20130916
  2. ALPHARADIN [Suspect]
     Indication: METASTASES TO BONE
     Dosage: 3.7 MBQ
     Route: 042
     Dates: start: 20131015, end: 20131015
  3. LUPRON [Concomitant]
     Indication: PROSTATE CANCER
     Dosage: 11.25 MG, Q3MON
     Dates: start: 200510
  4. REGLAN [Concomitant]
     Indication: NAUSEA
     Dosage: 40 MG, DAILY
     Route: 048
     Dates: start: 20130404
  5. ZOFRAN [Concomitant]
     Indication: NAUSEA
     Dosage: 4 MG DAILY
     Route: 048
     Dates: start: 20130624
  6. OLANZAPINE [Concomitant]
     Indication: NAUSEA
     Dosage: 5 MG DAILY
     Route: 048
     Dates: start: 20130717
  7. CIPRALEX [Concomitant]
     Indication: DEPRESSION
     Dosage: 10 MG DAILY
     Route: 048
     Dates: start: 20130731, end: 20130827
  8. MIRTAZAPINE [Concomitant]
     Indication: DEPRESSION
     Dosage: 15 MG DAILY
     Route: 048
     Dates: start: 20130828
  9. ATIVAN [Concomitant]
     Indication: ANXIETY
     Dosage: 3 MG DAILY
     Route: 048
     Dates: start: 20130717
  10. FENTANYL [Concomitant]
     Indication: BONE PAIN
     Dosage: 25 MG DAILY
     Route: 062
     Dates: start: 20130331
  11. OXYCODONE [Concomitant]
     Indication: BONE PAIN
     Dosage: 90 MG DAILY
     Route: 048
     Dates: start: 20130624
  12. DILAUDID [Concomitant]
     Indication: BONE PAIN
     Dosage: 2 MG DAILY
     Route: 058
     Dates: start: 20130916, end: 20130916

REACTIONS (1)
  - Bone pain [Recovered/Resolved]
